FAERS Safety Report 9192212 (Version 1)
Quarter: 2013Q1

REPORT INFORMATION
  Report Type: Spontaneous
  Country: US (occurrence: None)
  Receive Date: 20120703
  Receipt Date: 20120703
  Transmission Date: 20140127
  Serious: Yes (Hospitalization)
  Sender: FDA-Public Use
  Company Number: PHEH2012US006709

PATIENT
  Age: 37 Year
  Sex: Male

DRUGS (1)
  1. GILENYA (FTY)CAPSULE [Suspect]
     Indication: MULTIPLE SCLEROSIS
     Route: 048

REACTIONS (5)
  - Multiple sclerosis relapse [None]
  - Visual impairment [None]
  - Gait disturbance [None]
  - Hearing impaired [None]
  - Balance disorder [None]
